FAERS Safety Report 9093150 (Version 1)
Quarter: 2013Q1

REPORT INFORMATION
  Report Type: Spontaneous
  Country: US (occurrence: None)
  Receive Date: 20130213
  Receipt Date: 20130213
  Transmission Date: 20140127
  Serious: Yes (Death)
  Sender: FDA-Public Use
  Company Number: None

PATIENT
  Age: 50 Year
  Sex: Male

DRUGS (1)
  1. PEGINESATIDE [Suspect]
     Indication: ANAEMIA OF CHRONIC DISEASE
     Dosage: 15 MG ONCE HEMODIALYSI ?ONCE

REACTIONS (2)
  - Cardiac arrest [None]
  - Burning sensation [None]
